FAERS Safety Report 12378938 (Version 1)
Quarter: 2016Q2

REPORT INFORMATION
  Report Type: Spontaneous
  Country: US (occurrence: US)
  Receive Date: 20160517
  Receipt Date: 20160517
  Transmission Date: 20160815
  Serious: No
  Sender: FDA-Public Use
  Company Number: US-RELYPSA-RLY2016000260

PATIENT

DRUGS (9)
  1. VELTASSA [Suspect]
     Active Substance: PATIROMER
     Indication: HYPERKALAEMIA
     Dosage: 8.4 G, DAILY
     Route: 048
     Dates: start: 20160310
  2. OXYCODONE                          /00045603/ [Concomitant]
     Active Substance: OXYCODONE
  3. RENA-VITE RX [Concomitant]
     Active Substance: ASCORBIC ACID\BIOTIN\CALCIUM PANTOTHENATE\CYANOCOBALAMIN\FOLIC ACID\NIACINAMIDE\PYRIDOXINE HYDROCHLORIDE\RIBOFLAVIN\THIAMINE MONONITRATE
  4. ASPIRIN                            /00002701/ [Concomitant]
     Active Substance: ASPIRIN
  5. MUPIROCIN                          /00753902/ [Concomitant]
  6. CALCIUM ACETATE. [Concomitant]
     Active Substance: CALCIUM ACETATE
  7. RENVELA [Concomitant]
     Active Substance: SEVELAMER CARBONATE
  8. LYRICA [Concomitant]
     Active Substance: PREGABALIN
  9. CALCIUM CITRATE + D [Concomitant]

REACTIONS (1)
  - Constipation [Unknown]
